FAERS Safety Report 14879032 (Version 5)
Quarter: 2018Q3

REPORT INFORMATION
  Report Type: Spontaneous
  Country: PT (occurrence: PT)
  Receive Date: 20180511
  Receipt Date: 20180730
  Transmission Date: 20181010
  Serious: Yes (Hospitalization, Other)
  Sender: FDA-Public Use
  Company Number: PT-AUROBINDO-AUR-APL-2018-024721

PATIENT
  Age: 77 Year
  Sex: Male

DRUGS (2)
  1. FLUOXETINE [Concomitant]
     Active Substance: FLUOXETINE HYDROCHLORIDE
     Indication: PRODUCT USED FOR UNKNOWN INDICATION
     Route: 065
  2. PAROXETINE. [Suspect]
     Active Substance: PAROXETINE
     Indication: PRODUCT USED FOR UNKNOWN INDICATION
     Dosage: 20 MILLIGRAM
     Route: 065

REACTIONS (6)
  - Seizure [Recovered/Resolved]
  - Myoclonus [Recovered/Resolved]
  - Drug prescribing error [Recovered/Resolved]
  - Wrong drug administered [Unknown]
  - Dyskinesia [Recovered/Resolved]
  - Drug interaction [Recovered/Resolved]
